FAERS Safety Report 18987980 (Version 2)
Quarter: 2021Q1

REPORT INFORMATION
  Report Type: Report from Study
  Country: US (occurrence: US)
  Receive Date: 20210309
  Receipt Date: 20210323
  Transmission Date: 20210420
  Serious: Yes (Hospitalization)
  Sender: FDA-Public Use
  Company Number: US-SA-2017SA221773

PATIENT
  Age: 65 Year
  Sex: Male
  Weight: 77.1 kg

DRUGS (33)
  1. POMALIDOMIDE [Suspect]
     Active Substance: POMALIDOMIDE
     Indication: PLASMA CELL MYELOMA
     Dosage: 2 MG,QD
     Route: 048
     Dates: start: 20171101, end: 20171103
  2. ALPHA LIPOIC ACID [Concomitant]
     Active Substance: .ALPHA.-LIPOIC ACID
     Dosage: TOTAL DAILY DOSE 600 MG
     Route: 048
     Dates: start: 20120312
  3. ASPIRIN [ACETYLSALICYLIC ACID] [Concomitant]
     Active Substance: ASPIRIN
     Dosage: TOTAL DAILY DOSE 325 MG
     Route: 048
     Dates: start: 20161116
  4. OSCAL [Concomitant]
     Active Substance: CALCIUM CARBONATE
     Dosage: TOTAL DAILY DOSE 2500 MG
     Route: 048
     Dates: start: 20110128
  5. HYDROXYZINE [Concomitant]
     Active Substance: HYDROXYZINE HYDROCHLORIDE
     Dosage: TOTAL DAILY DOSE 10 MG
     Route: 048
     Dates: start: 20150311
  6. COMPAZINE [Concomitant]
     Active Substance: PROCHLORPERAZINE MALEATE
     Dosage: TOTAL DAILY DOSE 10 MG
     Route: 048
     Dates: start: 20160829
  7. ACETAMINOPHEN. [Concomitant]
     Active Substance: ACETAMINOPHEN
     Dosage: 650 MG,1X
     Route: 048
     Dates: start: 20171101, end: 20171101
  8. KLONOPIN [Concomitant]
     Active Substance: CLONAZEPAM
     Dosage: TOTAL DAILY DOSE 1 MG
     Route: 048
     Dates: start: 20140519
  9. POMALIDOMIDE [Suspect]
     Active Substance: POMALIDOMIDE
     Dosage: 4 MG,QD
     Route: 048
     Dates: start: 20161117, end: 20161117
  10. ACETYLCARNITINE [Concomitant]
     Active Substance: ACETYLCARNITINE
     Dosage: TOTAL DAILY DOSE 500 MG
     Route: 048
     Dates: start: 20120312, end: 20180312
  11. PERIDEX [CHLORHEXIDINE GLUCONATE] [Concomitant]
     Dosage: TOTAL DAILY DOSE 0.12 %
     Route: 048
     Dates: start: 20150316
  12. VITAMINS NOS [Concomitant]
     Active Substance: VITAMINS
     Dosage: UNK UNK,UNK
     Route: 048
     Dates: start: 20080307
  13. ZOVIRAX [Concomitant]
     Active Substance: ACYCLOVIR
     Dosage: TOTAL DAILY DOSE 800 MG
     Route: 048
     Dates: start: 20140507
  14. NEURONTIN [Concomitant]
     Active Substance: GABAPENTIN
     Dosage: TOTAL DAILY DOSE 2700 MG
     Route: 048
     Dates: start: 20170731, end: 20171214
  15. ATIVAN [Concomitant]
     Active Substance: LORAZEPAM
     Dosage: TOTAL DAILY DOSE 1 MG
     Route: 048
     Dates: start: 20150319
  16. OXYCODONE [Concomitant]
     Active Substance: OXYCODONE
     Dosage: UNK UNK,UNKTOTAL DAILY DOSE 5 MG
     Route: 048
     Dates: start: 20160815
  17. VITAMIN B COMPLEX [Concomitant]
     Active Substance: CYANOCOBALAMIN\DEXPANTHENOL\NIACINAMIDE\PYRIDOXINE HYDROCHLORIDE\RIBOFLAVIN 5^-PHOSPHATE SODIUM\THIAMINE HYDROCHLORIDE\VITAMIN B COMPLEX
     Dosage: UNK UNK,UNK
     Route: 048
     Dates: start: 20120312
  18. METFORMIN [Concomitant]
     Active Substance: METFORMIN HYDROCHLORIDE
     Dosage: TOTAL DAILY DOSE 1700 MG
     Route: 048
     Dates: start: 20170606
  19. FOLIC ACID. [Concomitant]
     Active Substance: FOLIC ACID
     Dosage: TOTAL DAILY DOSE 1 MG
     Route: 048
     Dates: start: 20130819
  20. PRILOSEC [Concomitant]
     Active Substance: OMEPRAZOLE MAGNESIUM
     Dosage: TOTAL DAILY DOSE 20 MG
     Route: 048
     Dates: start: 20140917
  21. ZOLOFT [Concomitant]
     Active Substance: SERTRALINE HYDROCHLORIDE
     Dosage: TOTAL DAILY DOSE 200 MG
     Route: 048
     Dates: start: 20170808
  22. ISATUXIMAB [Suspect]
     Active Substance: ISATUXIMAB
     Dosage: 10 MG/KG,QW
     Route: 042
     Dates: start: 20161117, end: 20161117
  23. DEXAMETHASONE. [Suspect]
     Active Substance: DEXAMETHASONE
     Indication: PLASMA CELL MYELOMA
     Dosage: 20 MG,QW
     Route: 042
     Dates: start: 20171101, end: 20171101
  24. TEMOVATE [Concomitant]
     Active Substance: CLOBETASOL PROPIONATE
     Dosage: TOTAL DAILY DOSE 0.05 %
     Route: 061
     Dates: start: 20140714
  25. ATROVENT [Concomitant]
     Active Substance: IPRATROPIUM BROMIDE
     Dosage: TOTAL DAILY DOSE 0.03 %
     Route: 045
     Dates: start: 20160509
  26. TOPAMAX [Concomitant]
     Active Substance: TOPIRAMATE
     Dosage: TOTAL DAILY DOSE 50 MG
     Route: 048
     Dates: start: 20160829
  27. DIPHENHYDRAMINE. [Concomitant]
     Active Substance: DIPHENHYDRAMINE
     Dosage: 25 MG,1X
     Route: 042
     Dates: start: 20171101, end: 20171101
  28. CYMBALTA [Concomitant]
     Active Substance: DULOXETINE HYDROCHLORIDE
     Dosage: TOTAL DAILY DOSE 30 MG
     Route: 048
     Dates: start: 20171011
  29. ISATUXIMAB [Suspect]
     Active Substance: ISATUXIMAB
     Indication: PLASMA CELL MYELOMA
     Dosage: 10 MG/KG,QOW
     Route: 042
     Dates: start: 20171101, end: 20171101
  30. DEXAMETHASONE. [Suspect]
     Active Substance: DEXAMETHASONE
     Dosage: 40 MG,QW
     Route: 048
     Dates: start: 20161117, end: 20161117
  31. VITAMIN D3 [Concomitant]
     Active Substance: CHOLECALCIFEROL
     Dosage: TOTAL DAILY DOSE 400 U
     Route: 048
     Dates: start: 20110128
  32. VITAMIN B6 [Concomitant]
     Active Substance: PYRIDOXINE HYDROCHLORIDE
     Dosage: TOTAL DAILY DOSE 50 MG
     Route: 048
     Dates: start: 20120412
  33. FAMOTIDINE. [Concomitant]
     Active Substance: FAMOTIDINE
     Dosage: 20 MG,1X
     Route: 042
     Dates: start: 20171101, end: 20171101

REACTIONS (1)
  - Parotitis [Recovered/Resolved]

NARRATIVE: CASE EVENT DATE: 20171104
